FAERS Safety Report 10222998 (Version 2)
Quarter: 2014Q3

REPORT INFORMATION
  Report Type: Report from Study
  Country: AU (occurrence: AU)
  Receive Date: 20140607
  Receipt Date: 20140724
  Transmission Date: 20150326
  Serious: Yes (Other)
  Sender: FDA-Public Use
  Company Number: PHHY2014AU068610

PATIENT
  Age: 65 Year
  Sex: Female

DRUGS (17)
  1. BENZTROPINE [Concomitant]
     Active Substance: BENZTROPINE
     Dosage: 2 MG, BID
  2. CHOLECALCIFEROL [Concomitant]
     Active Substance: CHOLECALCIFEROL
     Dosage: 1 DF, QMO
  3. ARIPIPRAZOLE [Concomitant]
     Active Substance: ARIPIPRAZOLE
     Dosage: 30 MG, (NOCTE)
  4. CLONIDINE. [Concomitant]
     Active Substance: CLONIDINE
     Dosage: 100 UG, BID
  5. ESOMEPRAZOLE [Concomitant]
     Active Substance: ESOMEPRAZOLE
     Dosage: 20 MG, (MANE)
  6. PARACETAMOL [Concomitant]
     Active Substance: ACETAMINOPHEN
     Dosage: 1 G, TDS
  7. PAROVEN [Concomitant]
     Dosage: 250 MG, (NOCTE)
  8. FRUSEMIDE [Concomitant]
     Active Substance: FUROSEMIDE
     Dosage: 40 MG, (MANE)
  9. METFORMIN HYDROCHLORIDE. [Concomitant]
     Active Substance: METFORMIN HYDROCHLORIDE
     Dosage: 500 MG, (NOCTE)
  10. PROCHLORPERAZINE MALEATE. [Concomitant]
     Active Substance: PROCHLORPERAZINE MALEATE
     Dosage: 5 MG, (MANE)
  11. UNGVITA [Concomitant]
     Dosage: UNK UKN, BID
     Route: 061
  12. CLOZARIL [Suspect]
     Active Substance: CLOZAPINE
     Dosage: UNK
     Dates: start: 2011
  13. BETAMET//BETAMETHASONE VALERATE [Concomitant]
     Dosage: UNK UKN, BID
     Route: 061
  14. ACIDOPHILUS [Concomitant]
     Active Substance: LACTOBACILLUS ACIDOPHILUS
     Dosage: 1 DF, (MANE)
  15. CLOZAPINE. [Concomitant]
     Active Substance: CLOZAPINE
     Dosage: 100 MG, (NOCTE)
  16. NORTRIPTYLINE [Concomitant]
     Active Substance: NORTRIPTYLINE
     Dosage: 75 MG, (NOCTE)
  17. THYROXINE [Concomitant]
     Active Substance: LEVOTHYROXINE
     Dosage: 50 UG, (MANE)

REACTIONS (18)
  - Blood potassium decreased [Recovered/Resolved]
  - Red blood cell count decreased [Recovered/Resolved]
  - White blood cell count increased [Recovered/Resolved]
  - Haemoglobin increased [Unknown]
  - Blood albumin increased [Recovered/Resolved]
  - Blood alkaline phosphatase increased [Unknown]
  - Urinary tract infection [Recovered/Resolved]
  - Aspartate aminotransferase increased [Recovered/Resolved]
  - Red blood cell sedimentation rate increased [Unknown]
  - Blood bilirubin decreased [Unknown]
  - Alanine aminotransferase increased [Recovered/Resolved]
  - Blood triglycerides increased [Unknown]
  - Neutrophil count increased [Recovered/Resolved]
  - Haemorrhage urinary tract [Unknown]
  - Kidney infection [Unknown]
  - Blood lactate dehydrogenase increased [Recovered/Resolved]
  - Blood uric acid increased [Not Recovered/Not Resolved]
  - Blood cholesterol increased [Not Recovered/Not Resolved]

NARRATIVE: CASE EVENT DATE: 20110808
